FAERS Safety Report 15240029 (Version 2)
Quarter: 2018Q3

REPORT INFORMATION
  Report Type: Spontaneous
  Country: CL (occurrence: CL)
  Receive Date: 20180803
  Receipt Date: 20180830
  Transmission Date: 20181010
  Serious: Yes (Other)
  Sender: FDA-Public Use
  Company Number: CL-009507513-1806CHL010775

PATIENT
  Age: 26 Year
  Sex: Female

DRUGS (1)
  1. IMPLANON [Suspect]
     Active Substance: ETONOGESTREL
     Indication: CHEMICAL CONTRACEPTION
     Dosage: 1 IMPLANT
     Route: 059
     Dates: start: 20150513, end: 20180622

REACTIONS (7)
  - Uterine inversion [Recovered/Resolved]
  - Dyspareunia [Recovered/Resolved]
  - Uterine infection [Recovered/Resolved]
  - Pelvic pain [Not Recovered/Not Resolved]
  - Headache [Recovered/Resolved]
  - Coital bleeding [Recovered/Resolved]
  - Incorrect drug administration duration [Unknown]

NARRATIVE: CASE EVENT DATE: 201605
